FAERS Safety Report 7811277-4 (Version None)
Quarter: 2011Q4

REPORT INFORMATION
  Report Type: 
  Country: None (occurrence: None)
  Receive Date: 20111011
  Receipt Date: 20111003
  Transmission Date: 20120403
  Serious: Yes (Death)
  Sender: FDA-Public Use
  Company Number: 1000024403

PATIENT
  Age: 85 Year
  Sex: Female

DRUGS (5)
  1. PREDNISONE [Concomitant]
  2. DALIRESP [Suspect]
     Indication: ASTHMA
     Dosage: 500 MCG (500 MCG, 1 IN 1 D), ORAL
     Route: 048
     Dates: start: 20110901, end: 20110901
  3. SINGULAIR (MONTELUKAST SODIUM) (MONTELUKAST SODIUM) [Concomitant]
  4. ADVAIR (SERETIDE) (SERETIDE) [Concomitant]
  5. SPIRIVA [Concomitant]

REACTIONS (2)
  - STATUS ASTHMATICUS [None]
  - OFF LABEL USE [None]
